FAERS Safety Report 5833832-3 (Version None)
Quarter: 2008Q3

REPORT INFORMATION
  Report Type: 
  Country: None (occurrence: None)
  Receive Date: 20080801
  Receipt Date: 20080801
  Transmission Date: 20090109
  Serious: No
  Sender: FDA-Public Use
  Company Number: None

PATIENT
  Age: 56 Year
  Sex: Female
  Weight: 95.709 kg

DRUGS (1)
  1. SIMVASTATIN 35 MG [Suspect]
     Indication: BLOOD CHOLESTEROL
     Dosage: 1 TABLET DAILY
     Dates: start: 20060106, end: 20080116

REACTIONS (11)
  - ARTHRALGIA [None]
  - ASTHENIA [None]
  - BLOOD CREATINE PHOSPHOKINASE INCREASED [None]
  - DEPRESSION [None]
  - FATIGUE [None]
  - HEADACHE [None]
  - LOSS OF CONTROL OF LEGS [None]
  - MOBILITY DECREASED [None]
  - MUSCLE SPASMS [None]
  - MUSCULAR WEAKNESS [None]
  - NEUROPATHY PERIPHERAL [None]
